FAERS Safety Report 7622005-X (Version None)
Quarter: 2011Q3

REPORT INFORMATION
  Report Type: 
  Country: None (occurrence: None)
  Receive Date: 20110720
  Receipt Date: 20100701
  Transmission Date: 20111222
  Serious: Yes (Hospitalization)
  Sender: FDA-Public Use
  Company Number: US-BAYER-201013643NA

PATIENT
  Age: 32 Year
  Sex: Female
  Weight: 95 kg

DRUGS (22)
  1. YASMIN [Suspect]
     Indication: POLYCYSTIC OVARIES
  2. YAZ [Suspect]
     Indication: ORAL CONTRACEPTION
  3. PHENERGAN HCL [Concomitant]
     Indication: PRODUCT USED FOR UNKNOWN INDICATION
     Dosage: 12.5 MG (DAILY DOSE), ,
     Dates: start: 20070127
  4. LISINOPRIL [Concomitant]
     Indication: BLOOD PRESSURE MANAGEMENT
     Dosage: 10 MG, UNK
  5. UNKNOWN DRUG [Concomitant]
  6. UNKNOWN DRUG [Concomitant]
  7. WELLBUTRIN [Concomitant]
     Indication: PRODUCT USED FOR UNKNOWN INDICATION
  8. YAZ [Suspect]
     Indication: POLYCYSTIC OVARIES
     Dosage: UNK UNK, QD
     Route: 048
     Dates: start: 20020129, end: 20070128
  9. GLUCOPHAGE [Concomitant]
     Indication: POLYCYSTIC OVARIES
     Dates: start: 19970101, end: 20090101
  10. TOPRAL [Concomitant]
     Indication: PRODUCT USED FOR UNKNOWN INDICATION
  11. YASMIN [Suspect]
     Indication: ORAL CONTRACEPTION
     Dosage: UNK UNK, QD
     Route: 048
     Dates: start: 20020129, end: 20070128
  12. ANTIVERT [Concomitant]
     Indication: PRODUCT USED FOR UNKNOWN INDICATION
     Dosage: 50 MG (DAILY DOSE), , ORAL
     Route: 048
     Dates: start: 20070127
  13. VALIUM [Concomitant]
     Indication: PRODUCT USED FOR UNKNOWN INDICATION
     Dosage: 2 MG (DAILY DOSE), , INTRAVENOUS
     Route: 042
     Dates: start: 20070127
  14. SPIRONOLACTONE [Concomitant]
     Indication: PRODUCT USED FOR UNKNOWN INDICATION
     Dosage: 50 MG, BID
  15. ASPIRIN [Concomitant]
     Indication: PRODUCT USED FOR UNKNOWN INDICATION
     Dates: start: 20070128, end: 20070131
  16. HEPARIN [Concomitant]
     Indication: PRODUCT USED FOR UNKNOWN INDICATION
     Dates: start: 20070128
  17. LIPITOR [Concomitant]
     Indication: PRODUCT USED FOR UNKNOWN INDICATION
  18. MORPHINE SULFATE [Concomitant]
     Indication: PRODUCT USED FOR UNKNOWN INDICATION
     Dosage: 4 MG (DAILY DOSE), , INTRAVENOUS
     Route: 042
     Dates: start: 20070127
  19. NORVASC [Concomitant]
     Indication: PRODUCT USED FOR UNKNOWN INDICATION
     Dosage: 10 MG, QD
     Dates: start: 20070128, end: 20070101
  20. NORVASC [Concomitant]
     Dates: start: 20070101
  21. UNKNOWN DRUG [Concomitant]
     Indication: HYPERTENSION
  22. HYDRALAZINE HCL [Concomitant]
     Indication: PRODUCT USED FOR UNKNOWN INDICATION
     Dosage: 10 MG, BID

REACTIONS (5)
  - VERTEBRAL ARTERY OCCLUSION [None]
  - CEREBELLAR INFARCTION [None]
  - HEADACHE [None]
  - DIZZINESS [None]
  - VOMITING [None]
